FAERS Safety Report 23334438 (Version 1)
Quarter: 2023Q4

REPORT INFORMATION
  Report Type: Spontaneous
  Country: US (occurrence: US)
  Receive Date: 20231224
  Receipt Date: 20231224
  Transmission Date: 20240110
  Serious: No
  Sender: FDA-Public Use
  Company Number: US-SA-SAC20231218000197

PATIENT
  Sex: Female
  Weight: 58.967 kg

DRUGS (6)
  1. DUPIXENT [Suspect]
     Active Substance: DUPILUMAB
     Indication: Dermatitis
     Dosage: 300 MG, QOW
     Route: 058
  2. NORETHINDRONE [Concomitant]
     Active Substance: NORETHINDRONE
  3. FERROUS SULFATE [Concomitant]
     Active Substance: FERROUS SULFATE
  4. LORATADINE D [Concomitant]
     Active Substance: LORATADINE\PSEUDOEPHEDRINE SULFATE
  5. VITAMIN D2 [Concomitant]
     Active Substance: ERGOCALCIFEROL
  6. PRENATAL U [Concomitant]

REACTIONS (2)
  - Maternal exposure timing unspecified [Unknown]
  - Product use in unapproved indication [Unknown]
